FAERS Safety Report 23584966 (Version 1)
Quarter: 2024Q1

REPORT INFORMATION
  Report Type: Spontaneous
  Country: PL (occurrence: PL)
  Receive Date: 20240301
  Receipt Date: 20240301
  Transmission Date: 20240410
  Serious: Yes (Hospitalization, Other)
  Sender: FDA-Public Use
  Company Number: PL-BAYER-2023A132132

PATIENT
  Sex: Female

DRUGS (2)
  1. EYLEA [Suspect]
     Active Substance: AFLIBERCEPT
     Indication: Visual impairment
     Dosage: UNK, RIGHT EYE; SOLUTION FOR INJECTION; 40 MG/ML
     Dates: start: 19321102
  2. EYLEA [Suspect]
     Active Substance: AFLIBERCEPT
     Indication: Age-related macular degeneration
     Dosage: UNK, RIGHT EYE; SOLUTION FOR INJECTION; 40 MG/ML
     Dates: start: 20230816, end: 20230816

REACTIONS (2)
  - Blindness [Unknown]
  - Endophthalmitis [Unknown]
